FAERS Safety Report 6380508-2 (Version None)
Quarter: 2009Q3

REPORT INFORMATION
  Report Type: 
  Country: None (occurrence: None)
  Receive Date: 20090924
  Receipt Date: 20090909
  Transmission Date: 20100115
  Serious: Yes (Hospitalization)
  Sender: FDA-Public Use
  Company Number: 001687

PATIENT
  Sex: Male
  Weight: 19.9 kg

DRUGS (2)
  1. LACOSAMIDE [Suspect]
     Indication: CONVULSION
     Dosage: 50 MG BID, 100 MG BID ORAL
     Route: 048
  2. PHENYTOIN [Suspect]
     Dosage: 150 MG, 50 MG A.M-100 MG NIGHT
     Dates: start: 20090902, end: 20090904

REACTIONS (6)
  - AGITATION [None]
  - ATAXIA [None]
  - DRUG INTERACTION [None]
  - DRUG LEVEL INCREASED [None]
  - SLEEP DISORDER [None]
  - VOMITING [None]
